FAERS Safety Report 14510283 (Version 2)
Quarter: 2018Q1

REPORT INFORMATION
  Report Type: Spontaneous
  Country: US (occurrence: US)
  Receive Date: 20180209
  Receipt Date: 20180314
  Transmission Date: 20180509
  Serious: Yes (Life-Threatening, Hospitalization, Disabling)
  Sender: FDA-Public Use
  Company Number: US-JNJFOC-20180203703

PATIENT
  Age: 74 Year
  Sex: Male

DRUGS (18)
  1. LIPITOR [Concomitant]
     Active Substance: ATORVASTATIN CALCIUM
     Route: 048
  2. DELTASON [Concomitant]
     Active Substance: PREDNISONE
     Dosage: WITH MEALS AND AT BEDTIME) AS NEEDED
     Route: 048
  3. ZYTIGA [Suspect]
     Active Substance: ABIRATERONE ACETATE
     Indication: PROSTATE CANCER METASTATIC
     Route: 048
     Dates: end: 20180126
  4. MORPHINE [Suspect]
     Active Substance: MORPHINE
     Indication: PAIN
     Route: 048
  5. CHLORTHALIDONE. [Concomitant]
     Active Substance: CHLORTHALIDONE
     Route: 048
  6. ZYPREXA [Concomitant]
     Active Substance: OLANZAPINE
     Dosage: WITH MEALS AND AT BEDTIME) AS NEEDED
     Route: 048
  7. XOFIGO [Suspect]
     Active Substance: RADIUM RA-223 DICHLORIDE
     Indication: PROSTATE CANCER METASTATIC
     Route: 065
     Dates: start: 2017, end: 20171021
  8. ORAZINC [Concomitant]
     Route: 048
  9. COZAAR [Concomitant]
     Active Substance: LOSARTAN POTASSIUM
     Indication: HYPERTENSION
     Route: 048
  10. MOTRIN [Concomitant]
     Active Substance: IBUPROFEN
     Indication: PAIN
     Dosage: WITH MEALS AND AT BEDTIME) AS NEEDED
     Route: 048
  11. TRAVATAN [Concomitant]
     Active Substance: TRAVOPROST
     Dosage: 0.004 % OPHTHALMIC SOLUTION, 1 DROP EACH AFFECTED EYE
     Route: 031
  12. ZYTIGA [Suspect]
     Active Substance: ABIRATERONE ACETATE
     Indication: PROSTATE CANCER METASTATIC
     Route: 048
     Dates: start: 2017, end: 20170922
  13. ZYTIGA [Suspect]
     Active Substance: ABIRATERONE ACETATE
     Indication: PROSTATE CANCER METASTATIC
     Route: 048
     Dates: start: 20170923, end: 20171021
  14. SINGULAIR [Concomitant]
     Active Substance: MONTELUKAST SODIUM
     Route: 048
  15. ZOFRAN [Concomitant]
     Active Substance: ONDANSETRON HYDROCHLORIDE
     Indication: NAUSEA
     Dosage: WITH MEALS AND AT BEDTIME) AS NEEDED
     Route: 048
  16. ZOFRAN [Concomitant]
     Active Substance: ONDANSETRON HYDROCHLORIDE
     Indication: VOMITING
     Dosage: WITH MEALS AND AT BEDTIME) AS NEEDED
     Route: 048
  17. XOFIGO [Suspect]
     Active Substance: RADIUM RA-223 DICHLORIDE
     Indication: PROSTATE CANCER METASTATIC
     Route: 065
  18. DELTASON [Concomitant]
     Active Substance: PREDNISONE
     Route: 048

REACTIONS (9)
  - Hypophosphataemia [Unknown]
  - Anaemia [Unknown]
  - Hypokalaemia [Recovered/Resolved]
  - Hypermagnesaemia [Recovered/Resolved]
  - Prostate cancer metastatic [Unknown]
  - Musculoskeletal chest pain [Recovered/Resolved]
  - Dehydration [Unknown]
  - Nausea [Unknown]
  - Constipation [Unknown]

NARRATIVE: CASE EVENT DATE: 2017
